FAERS Safety Report 4475441-7 (Version None)
Quarter: 2004Q4

REPORT INFORMATION
  Report Type: 
  Country: None (occurrence: None)
  Receive Date: 20041014
  Receipt Date: 20041014
  Transmission Date: 20050328
  Serious: Yes (Hospitalization)
  Sender: FDA-Public Use
  Company Number: None

PATIENT
  Age: 53 Year
  Sex: Female
  Weight: 128.368 kg

DRUGS (1)
  1. GENERIC FUROSEMIDE 40 MG [Suspect]
     Indication: CARDIAC FAILURE CONGESTIVE
     Dosage: 40 MG BID PO
     Route: 048

REACTIONS (2)
  - CARDIAC FAILURE CONGESTIVE [None]
  - PHARMACEUTICAL PRODUCT COMPLAINT [None]
